FAERS Safety Report 7929313-3 (Version None)
Quarter: 2011Q4

REPORT INFORMATION
  Report Type: 
  Country: None (occurrence: None)
  Receive Date: 20111121
  Receipt Date: 20111112
  Transmission Date: 20120403
  Serious: No
  Sender: FDA-Public Use
  Company Number: US-BIOGENIDEC-2011BI043343

PATIENT
  Age: 35 Year
  Sex: Female

DRUGS (1)
  1. TYSABRI [Suspect]
     Indication: MULTIPLE SCLEROSIS
     Route: 042
     Dates: start: 20080506

REACTIONS (5)
  - MUSCULOSKELETAL CHEST PAIN [None]
  - WHEEZING [None]
  - NASOPHARYNGITIS [None]
  - DIARRHOEA [None]
  - VOMITING [None]
